FAERS Safety Report 21198100 (Version 2)
Quarter: 2022Q4

REPORT INFORMATION
  Report Type: Spontaneous
  Country: US (occurrence: US)
  Receive Date: 20220811
  Receipt Date: 20221021
  Transmission Date: 20230113
  Serious: Yes (Other)
  Sender: FDA-Public Use
  Company Number: US-CELGENE-USA-20191000157

PATIENT
  Sex: Female

DRUGS (1)
  1. THALOMID [Suspect]
     Active Substance: THALIDOMIDE
     Indication: Product used for unknown indication
     Dosage: FREQUENCY TEXT: UNKNOWN
     Route: 003

REACTIONS (2)
  - Exposure during pregnancy [Unknown]
  - Accidental exposure to product [Unknown]
